FAERS Safety Report 4650116-X (Version None)
Quarter: 2005Q2

REPORT INFORMATION
  Report Type: 
  Country: None (occurrence: None)
  Receive Date: 20050502
  Receipt Date: 20050425
  Transmission Date: 20051028
  Serious: Yes (Hospitalization, Other)
  Sender: FDA-Public Use
  Company Number: US-BRISTOL-MYERS SQUIBB COMPANY-12945226

PATIENT
  Age: 78 Year
  Sex: Male

DRUGS (13)
  1. CETUXIMAB [Suspect]
     Indication: NON-SMALL CELL LUNG CANCER
     Dosage: 3RD COURSE, THERAPY DELAYED/OMITTED.  THERAPY START DATE 23-FEB-2005.
     Route: 042
     Dates: start: 20050101, end: 20050101
  2. CARBOPLATIN [Suspect]
     Indication: NON-SMALL CELL LUNG CANCER
     Dosage: 3RD COURSE, THERAPY START DATE 23-FEB-2005.
     Route: 042
     Dates: start: 20050101, end: 20050101
  3. TAXOTERE [Suspect]
     Indication: NON-SMALL CELL LUNG CANCER
     Dosage: 3RD COURSE, THERAPY START DATE 23-FEB-2005.
     Route: 042
     Dates: start: 20050101, end: 20050101
  4. SPIRIVA [Concomitant]
  5. COLACE [Concomitant]
  6. XOPENEX [Concomitant]
  7. ADVAIR DISKUS 100/50 [Concomitant]
  8. LEVAQUIN [Concomitant]
  9. LASIX [Concomitant]
  10. NEXIUM [Concomitant]
  11. CLARITIN [Concomitant]
  12. TYLENOL W/ CODEINE NO. 3 [Concomitant]
  13. PHENERGAN [Concomitant]

REACTIONS (2)
  - ANAEMIA [None]
  - PNEUMONIA [None]
